FAERS Safety Report 9806423 (Version 1)
Quarter: 2014Q1

REPORT INFORMATION
  Report Type: Spontaneous
  Country: US (occurrence: US)
  Receive Date: 20140109
  Receipt Date: 20140109
  Transmission Date: 20141002
  Serious: Yes (Death)
  Sender: FDA-Public Use
  Company Number: US-PFIZER INC-2014006181

PATIENT
  Age: 47 Year
  Sex: Female

DRUGS (4)
  1. VERAPAMIL HCL [Suspect]
  2. COCAINE [Suspect]
  3. HEROIN [Suspect]
  4. QUININE [Suspect]

REACTIONS (1)
  - Drug abuse [Fatal]
